FAERS Safety Report 13472529 (Version 1)
Quarter: 2017Q2

REPORT INFORMATION
  Report Type: Spontaneous
  Country: US (occurrence: US)
  Receive Date: 20170423
  Receipt Date: 20170423
  Transmission Date: 20170830
  Serious: Yes (Disabling)
  Sender: FDA-Public Use
  Company Number: None

PATIENT
  Age: 33 Year
  Sex: Female
  Weight: 59.85 kg

DRUGS (4)
  1. CYTOTEC [Suspect]
     Active Substance: MISOPROSTOL
     Indication: ABORTION SPONTANEOUS
     Dates: start: 20170227, end: 20170227
  2. FISH OIL [Concomitant]
     Active Substance: FISH OIL
  3. CALCIUM [Concomitant]
     Active Substance: CALCIUM
  4. PRENATAL [Concomitant]
     Active Substance: VITAMINS

REACTIONS (2)
  - Hypoaesthesia [None]
  - Paraesthesia [None]

NARRATIVE: CASE EVENT DATE: 20170227
